FAERS Safety Report 6508357-2 (Version None)
Quarter: 2009Q4

REPORT INFORMATION
  Report Type: 
  Country: None (occurrence: None)
  Receive Date: 20091221
  Receipt Date: 20081028
  Transmission Date: 20100525
  Serious: No
  Sender: FDA-Public Use
  Company Number: US-ASTRAZENECA-2008UW23972

PATIENT

DRUGS (2)
  1. CRESTOR [Suspect]
     Route: 048
     Dates: start: 20080926, end: 20081002
  2. CRESTOR [Suspect]
     Route: 048
     Dates: start: 20081003, end: 20081004

REACTIONS (4)
  - HEADACHE [None]
  - IRRITABILITY [None]
  - MUSCULAR WEAKNESS [None]
  - MYALGIA [None]
